FAERS Safety Report 9808586 (Version 1)
Quarter: 2014Q1

REPORT INFORMATION
  Report Type: Spontaneous
  Country: US (occurrence: None)
  Receive Date: 20140108
  Receipt Date: 20140108
  Transmission Date: 20141002
  Serious: Yes (Other)
  Sender: FDA-Public Use
  Company Number: SYM-2014-14622

PATIENT
  Age: 30 Year
  Sex: Female

DRUGS (1)
  1. XENAZINE [Suspect]
     Indication: TOURETTE^S DISORDER
     Dosage: 12.5 MG, 2 IN 1 D, ORAL
     Route: 048
     Dates: start: 20131104, end: 20131219

REACTIONS (1)
  - Convulsion [None]
